FAERS Safety Report 9982599 (Version 1)
Quarter: 2014Q1

REPORT INFORMATION
  Report Type: Report from Study
  Country: US (occurrence: US)
  Receive Date: 20140307
  Receipt Date: 20140307
  Transmission Date: 20141002
  Serious: No
  Sender: FDA-Public Use
  Company Number: US-ABBVIE-13P-163-1180799-00

PATIENT
  Age: 61 Year
  Sex: Male

DRUGS (6)
  1. HUMIRA [Suspect]
     Indication: PSORIASIS
     Dates: start: 2010
  2. HUMIRA [Suspect]
     Indication: PSORIATIC ARTHROPATHY
  3. DIOVAN [Concomitant]
     Indication: BLOOD PRESSURE ABNORMAL
  4. ATENOLOL [Concomitant]
     Indication: BLOOD PRESSURE ABNORMAL
  5. RITALIN [Concomitant]
     Indication: NARCOLEPSY
  6. AMBIEN [Concomitant]
     Indication: INSOMNIA

REACTIONS (1)
  - Psoriasis [Recovered/Resolved]
